FAERS Safety Report 12517598 (Version 1)
Quarter: 2016Q2

REPORT INFORMATION
  Report Type: Report from Study
  Country: BR (occurrence: BR)
  Receive Date: 20160630
  Receipt Date: 20160630
  Transmission Date: 20160815
  Serious: Yes (Other)
  Sender: FDA-Public Use
  Company Number: PHHY2016BR087735

PATIENT
  Sex: Female
  Weight: 100 kg

DRUGS (2)
  1. DIOVAN AMLO FIX [Suspect]
     Active Substance: AMLODIPINE\VALSARTAN
     Indication: DIABETES MELLITUS
     Dosage: 1 DF, BID (5 MG AMLODIPINE, 80 MG VALSARTAN) (1 TABLET IN MORNING AND 1 TABLET AT NIGHT)
     Route: 048
  2. GALVUS MET [Suspect]
     Active Substance: METFORMIN HYDROCHLORIDE\VILDAGLIPTIN
     Indication: DIABETES MELLITUS
     Dosage: 1 DF, TID (1000 MG METFORMIN, 50 MG VIDAGLIPTIN) (1 TABLET IN MORNING, 1 AT LUNCH AND 1 IN EVENING)
     Route: 048

REACTIONS (5)
  - Rheumatoid arthritis [Not Recovered/Not Resolved]
  - Pain [Not Recovered/Not Resolved]
  - Bone pain [Not Recovered/Not Resolved]
  - Osteoarthritis [Not Recovered/Not Resolved]
  - Product use issue [Unknown]
